FAERS Safety Report 24938211 (Version 1)
Quarter: 2025Q1

REPORT INFORMATION
  Report Type: Spontaneous
  Country: SI (occurrence: SI)
  Receive Date: 20250206
  Receipt Date: 20250206
  Transmission Date: 20250409
  Serious: Yes (Other)
  Sender: CALLIDITAS THERAPEUTICS AB
  Company Number: SI-STADA-01347514

PATIENT
  Age: 59 Year
  Sex: Female

DRUGS (9)
  1. Aldizem [Concomitant]
     Dosage: 2 SEPARATED DOSES
  2. SODIUM BICARBONATE [Concomitant]
     Active Substance: SODIUM BICARBONATE
  3. DIOVAN [Concomitant]
     Active Substance: VALSARTAN
     Dosage: 2 SEPARATED DOSES
  4. FEBUXOSTAT [Concomitant]
     Active Substance: FEBUXOSTAT
  5. Coupet 10 mg [Concomitant]
  6. Forxiga 10 mg [Concomitant]
  7. Tertensif SR 1,5 mg [Concomitant]
  8. Nolpaza 40 mg [Concomitant]
  9. BUDESONIDE [Suspect]
     Active Substance: BUDESONIDE
     Indication: Product used for unknown indication
     Route: 048

REACTIONS (6)
  - Blood pressure increased [Unknown]
  - Adrenal insufficiency [Unknown]
  - Contusion [Unknown]
  - Taste disorder [Unknown]
  - Vertigo [Unknown]
  - Swelling face [Unknown]
